FAERS Safety Report 16454224 (Version 1)
Quarter: 2019Q2

REPORT INFORMATION
  Report Type: Spontaneous
  Country: GB (occurrence: GB)
  Receive Date: 20190619
  Receipt Date: 20190619
  Transmission Date: 20190711
  Serious: Yes (Disabling, Other)
  Sender: FDA-Public Use
  Company Number: GB-MYLANLABS-2019M1057163

PATIENT
  Age: 55 Year
  Sex: Female
  Weight: 50 kg

DRUGS (6)
  1. MIRTAZAPINE. [Suspect]
     Active Substance: MIRTAZAPINE
     Indication: ANXIETY
     Dosage: AT NIGHT.
     Route: 048
     Dates: start: 20161210, end: 20180110
  2. FENBID [Suspect]
     Active Substance: IBUPROFEN
     Indication: OSTEOARTHRITIS
     Dosage: 4 DOSAGE FORM, QD
     Route: 061
     Dates: start: 20170401, end: 20180204
  3. BETMIGA [Concomitant]
     Active Substance: MIRABEGRON
     Dosage: UNK
  4. CHLORPROMAZINE. [Concomitant]
     Active Substance: CHLORPROMAZINE
     Dosage: UNK
  5. DOSULEPIN HYDROCHLORIDE [Concomitant]
     Active Substance: DOTHIEPIN HYDROCHLORIDE
     Dosage: UNK
  6. LOPERAMIDE [Concomitant]
     Active Substance: LOPERAMIDE
     Dosage: UNK

REACTIONS (14)
  - Drug dependence [Unknown]
  - Malaise [Recovered/Resolved]
  - Memory impairment [Recovering/Resolving]
  - Arthralgia [Unknown]
  - Feeling abnormal [Recovered/Resolved with Sequelae]
  - Agitation [Recovered/Resolved]
  - Incontinence [Not Recovered/Not Resolved]
  - Muscle spasms [Recovered/Resolved]
  - Muscular weakness [Unknown]
  - Anger [Recovered/Resolved]
  - Migraine [Recovered/Resolved]
  - Application site reaction [Unknown]
  - Nocturia [Not Recovered/Not Resolved]
  - Muscle atrophy [Unknown]
